FAERS Safety Report 17068147 (Version 2)
Quarter: 2019Q4

REPORT INFORMATION
  Report Type: Spontaneous
  Country: US (occurrence: US)
  Receive Date: 20191122
  Receipt Date: 20191126
  Transmission Date: 20200122
  Serious: No
  Sender: FDA-Public Use
  Company Number: NVSC2019US028162

PATIENT
  Sex: Female

DRUGS (4)
  1. COSENTYX [Suspect]
     Active Substance: SECUKINUMAB
     Indication: PSORIASIS
     Dosage: 150 MG/ML, QW
     Route: 065
     Dates: start: 20191022
  2. NORVASC [Suspect]
     Active Substance: AMLODIPINE BESYLATE
     Indication: HYPERTENSION
     Dosage: UNK
     Route: 065
     Dates: start: 20190918, end: 20191018
  3. NORVASC [Suspect]
     Active Substance: AMLODIPINE BESYLATE
     Dosage: UNK
     Route: 065
  4. COSENTYX [Suspect]
     Active Substance: SECUKINUMAB
     Dosage: 150 MG/ML, QW
     Route: 065
     Dates: start: 20191028

REACTIONS (5)
  - Paranasal sinus discomfort [Unknown]
  - Fatigue [Unknown]
  - Condition aggravated [Unknown]
  - Dyspnoea [Unknown]
  - Headache [Recovered/Resolved]
